FAERS Safety Report 23158521 (Version 1)
Quarter: 2023Q4

REPORT INFORMATION
  Report Type: Spontaneous
  Country: US (occurrence: US)
  Receive Date: 20231108
  Receipt Date: 20231108
  Transmission Date: 20240110
  Serious: Yes (Other)
  Sender: FDA-Public Use
  Company Number: US-MYLANLABS-2023M1116355

PATIENT
  Age: 59 Year
  Sex: Female

DRUGS (12)
  1. MYCOPHENOLATE MOFETIL [Suspect]
     Active Substance: MYCOPHENOLATE MOFETIL
     Indication: Chronic cutaneous lupus erythematosus
     Dosage: UNK
     Route: 065
  2. PREDNISONE [Suspect]
     Active Substance: PREDNISONE
     Indication: Chronic cutaneous lupus erythematosus
     Dosage: UNK
     Route: 065
  3. AZATHIOPRINE [Suspect]
     Active Substance: AZATHIOPRINE
     Indication: Chronic cutaneous lupus erythematosus
     Dosage: UNK
     Route: 065
  4. EPRATUZUMAB [Suspect]
     Active Substance: EPRATUZUMAB
     Indication: Chronic cutaneous lupus erythematosus
     Dosage: UNK
     Route: 065
  5. THALIDOMIDE [Concomitant]
     Active Substance: THALIDOMIDE
     Indication: Chronic cutaneous lupus erythematosus
     Dosage: 50 MILLIGRAM, 3XW
     Route: 065
  6. THALIDOMIDE [Concomitant]
     Active Substance: THALIDOMIDE
     Dosage: UNK (DOSE INCREASED)
     Route: 065
  7. HYDROXYCHLOROQUINE [Concomitant]
     Active Substance: HYDROXYCHLOROQUINE
     Indication: Chronic cutaneous lupus erythematosus
     Dosage: 200 MILLIGRAM, BID
     Route: 065
  8. METHOTREXATE [Concomitant]
     Active Substance: METHOTREXATE
     Indication: Chronic cutaneous lupus erythematosus
     Dosage: 20 MILLIGRAM, QW
     Route: 065
  9. ASPIRIN [Concomitant]
     Active Substance: ASPIRIN
     Indication: Chronic cutaneous lupus erythematosus
     Dosage: 325 MILLIGRAM, QD
     Route: 065
  10. HALOBETASOL [Concomitant]
     Active Substance: HALOBETASOL
     Indication: Chronic cutaneous lupus erythematosus
     Dosage: UNK
     Route: 061
  11. TRIAMCINOLONE [Concomitant]
     Active Substance: TRIAMCINOLONE
     Indication: Chronic cutaneous lupus erythematosus
     Dosage: 5 MG/CC
     Route: 026
  12. CHLOROQUINE [Concomitant]
     Active Substance: CHLOROQUINE
     Indication: Chronic cutaneous lupus erythematosus
     Dosage: 250 MILLIGRAM, QD
     Route: 065

REACTIONS (2)
  - Therapy non-responder [Unknown]
  - Off label use [Unknown]
